FAERS Safety Report 16547079 (Version 1)
Quarter: 2019Q3

REPORT INFORMATION
  Report Type: Spontaneous
  Country: CA (occurrence: CA)
  Receive Date: 20190709
  Receipt Date: 20190709
  Transmission Date: 20191004
  Serious: Yes (Other)
  Sender: FDA-Public Use
  Company Number: CA-FRESENIUS KABI-FK201907455

PATIENT
  Age: 78 Year
  Sex: Male

DRUGS (4)
  1. HEPARIN (MANUFACTURER UNKNOWN) [Suspect]
     Active Substance: HEPARIN SODIUM
     Indication: ANTICOAGULANT THERAPY
     Dosage: UNKNOWN
     Route: 065
  2. DALTEPARIN [Suspect]
     Active Substance: DALTEPARIN
     Indication: THROMBOSIS PROPHYLAXIS
     Dosage: UNKNOWN
     Route: 065
  3. HEPARIN (MANUFACTURER UNKNOWN) [Suspect]
     Active Substance: HEPARIN SODIUM
     Dosage: ON POSTOPERATIVE (POD) 4
     Route: 065
  4. WARFARIN [Suspect]
     Active Substance: WARFARIN
     Indication: DEEP VEIN THROMBOSIS
     Dosage: UNKNOWN
     Route: 065

REACTIONS (4)
  - Peripheral ischaemia [Not Recovered/Not Resolved]
  - Heparin-induced thrombocytopenia [Recovered/Resolved]
  - Disseminated intravascular coagulation [Unknown]
  - Dry gangrene [Not Recovered/Not Resolved]
